FAERS Safety Report 6164439-9 (Version None)
Quarter: 2009Q2

REPORT INFORMATION
  Report Type: 
  Country: None (occurrence: None)
  Receive Date: 20090422
  Receipt Date: 20090408
  Transmission Date: 20091009
  Serious: Yes (Life-Threatening)
  Sender: FDA-Public Use
  Company Number: GB-BAUSCH-2009BL001640

PATIENT
  Age: 24 Year
  Sex: Male

DRUGS (3)
  1. PREDNISOLONE [Suspect]
     Indication: CROHN'S DISEASE
     Dates: start: 20070101
  2. INFLIXIMAB [Suspect]
     Indication: CROHN'S DISEASE
     Dates: start: 20071001
  3. METHOTREXATE [Suspect]
     Indication: CROHN'S DISEASE
     Dates: start: 20060101

REACTIONS (5)
  - HYPOTENSION [None]
  - MENINGITIS LISTERIA [None]
  - MENTAL DISORDER [None]
  - MUSCULOSKELETAL STIFFNESS [None]
  - TACHYCARDIA [None]
